FAERS Safety Report 6088656-1 (Version None)
Quarter: 2009Q1

REPORT INFORMATION
  Report Type: 
  Country: None (occurrence: None)
  Receive Date: 20090219
  Receipt Date: 20090210
  Transmission Date: 20090719
  Serious: Yes (Hospitalization, Other)
  Sender: FDA-Public Use
  Company Number: GXKR2009DE00720

PATIENT
  Sex: Male
  Weight: 115 kg

DRUGS (6)
  1. AMLODIPINE [Suspect]
     Dosage: 5 MG, BID
  2. HYDROCHLOROTHIAZIDE [Suspect]
     Dosage: 25 MG, QD, ORAL
     Route: 048
  3. RAMIPRIL [Suspect]
     Dosage: 5 MG, BID, ORAL
     Route: 048
  4. BELOC-ZOC MITE (METOPROLOL SUCCINATE) 47.5MG [Suspect]
     Dosage: 47.5 MG, QD
  5. ENALAPRIL MALEATE [Concomitant]
  6. ACTRAPHANE HM (INSULIN HUMAN INJECTION, ISOPHANE) INJECTION [Concomitant]

REACTIONS (2)
  - COOMBS POSITIVE HAEMOLYTIC ANAEMIA [None]
  - UNEVALUABLE EVENT [None]
